FAERS Safety Report 7304844-8 (Version None)
Quarter: 2011Q1

REPORT INFORMATION
  Report Type: 
  Country: None (occurrence: None)
  Receive Date: 20110222
  Receipt Date: 20110208
  Transmission Date: 20110831
  Serious: Yes (Hospitalization)
  Sender: FDA-Public Use
  Company Number: DE-ELI_LILLY_AND_COMPANY-DE201102002204

PATIENT
  Age: 77 Year
  Sex: Female

DRUGS (10)
  1. ENALAPRIL [Concomitant]
  2. VITAMIN B [Concomitant]
  3. BISOPROLOL [Concomitant]
  4. FORTEO [Suspect]
     Indication: OSTEOPOROSIS
     Route: 058
     Dates: start: 20100512, end: 20110103
  5. MORPHINE [Concomitant]
  6. VIGANTOLETTEN [Concomitant]
  7. SPIRIVA [Concomitant]
     Indication: CHRONIC OBSTRUCTIVE PULMONARY DISEASE
     Route: 055
  8. ASPIRIN [Concomitant]
     Indication: HAEMODILUTION
  9. AMITRIPTYLINE HCL [Concomitant]
     Indication: DEPRESSION
  10. MOLSIDOMIN [Concomitant]
     Indication: CARDIOVASCULAR DISORDER

REACTIONS (1)
  - SKIN ULCER [None]
